FAERS Safety Report 17279290 (Version 9)
Quarter: 2020Q3

REPORT INFORMATION
  Report Type: Report from Study
  Country: IE (occurrence: IE)
  Receive Date: 20200116
  Receipt Date: 20200718
  Transmission Date: 20201102
  Serious: Yes (Hospitalization, Other)
  Sender: FDA-Public Use
  Company Number: IE-TAKEDA-2020TUS002698

PATIENT
  Age: 71 Year
  Sex: Male

DRUGS (29)
  1. BORTEZOMIB. [Suspect]
     Active Substance: BORTEZOMIB
     Dosage: 2 MILLIGRAM
     Route: 058
     Dates: start: 20191204
  2. BORTEZOMIB. [Suspect]
     Active Substance: BORTEZOMIB
     Dosage: 0.8 MILLIGRAM/SQ. METER
     Route: 058
     Dates: start: 20200402
  3. BORTEZOMIB. [Suspect]
     Active Substance: BORTEZOMIB
     Dosage: 0.8 MILLIGRAM/SQ. METER
     Route: 058
     Dates: start: 20200618
  4. BORTEZOMIB. [Suspect]
     Active Substance: BORTEZOMIB
     Dosage: 2.5 MILLIGRAM
     Route: 058
     Dates: start: 20200123
  5. BORTEZOMIB. [Suspect]
     Active Substance: BORTEZOMIB
     Dosage: 0.8 MILLIGRAM/SQ. METER
     Route: 058
     Dates: start: 20200326
  6. BORTEZOMIB. [Suspect]
     Active Substance: BORTEZOMIB
     Dosage: 0.8 MILLIGRAM/SQ. METER
     Route: 058
     Dates: start: 20200416
  7. ASPRIN [Concomitant]
     Active Substance: ASPIRIN
     Dosage: 75 MILLIGRAM, QD
     Route: 065
  8. BORTEZOMIB. [Suspect]
     Active Substance: BORTEZOMIB
     Dosage: 0.8 MILLIGRAM/SQ. METER
     Route: 058
     Dates: start: 20200409
  9. BORTEZOMIB. [Suspect]
     Active Substance: BORTEZOMIB
     Dosage: 0.8 MILLIGRAM/SQ. METER
     Route: 058
     Dates: start: 20200611
  10. BORTEZOMIB. [Suspect]
     Active Substance: BORTEZOMIB
     Dosage: 0.8 MILLIGRAM/SQ. METER
     Route: 058
     Dates: start: 20200625
  11. CYCLOPHOSPHAMIDE. [Concomitant]
     Active Substance: CYCLOPHOSPHAMIDE
     Indication: PRODUCT USED FOR UNKNOWN INDICATION
     Dosage: 600 MILLIGRAM
     Route: 065
  12. CALCICHEW D3 [Concomitant]
     Active Substance: CALCIUM\CHOLECALCIFEROL
     Dosage: 100 MILLIGRAM, QD
     Route: 065
  13. BORTEZOMIB. [Suspect]
     Active Substance: BORTEZOMIB
     Dosage: 0.8 MILLIGRAM/SQ. METER
     Route: 058
     Dates: start: 20200702
  14. CYCLOPHOSPHAMIDE. [Concomitant]
     Active Substance: CYCLOPHOSPHAMIDE
     Dosage: 50 MILLIGRAM
     Route: 065
  15. LANSOPRAZOLE. [Concomitant]
     Active Substance: LANSOPRAZOLE
     Indication: PRODUCT USED FOR UNKNOWN INDICATION
     Dosage: 30 MILLIGRAM, TID
     Route: 050
  16. BORTEZOMIB. [Suspect]
     Active Substance: BORTEZOMIB
     Dosage: 0.8 MILLIGRAM/SQ. METER
     Route: 058
     Dates: start: 20200312
  17. BORTEZOMIB. [Suspect]
     Active Substance: BORTEZOMIB
     Dosage: 0.8 MILLIGRAM/SQ. METER
     Route: 058
     Dates: start: 20200507
  18. BORTEZOMIB. [Suspect]
     Active Substance: BORTEZOMIB
     Dosage: 0.8 MILLIGRAM/SQ. METER
     Route: 058
     Dates: start: 20200528
  19. DEXAMETHASONE. [Concomitant]
     Active Substance: DEXAMETHASONE
     Indication: PRODUCT USED FOR UNKNOWN INDICATION
     Dosage: 40 MILLIGRAM
     Route: 065
  20. ALLOPURINOL. [Concomitant]
     Active Substance: ALLOPURINOL
     Indication: PRODUCT USED FOR UNKNOWN INDICATION
     Dosage: 100 MILLIGRAM, QD
     Route: 050
  21. BORTEZOMIB. [Suspect]
     Active Substance: BORTEZOMIB
     Dosage: 0.8 MILLIGRAM/SQ. METER
     Route: 058
     Dates: start: 20200514
  22. BORTEZOMIB. [Suspect]
     Active Substance: BORTEZOMIB
     Dosage: 0.8 MILLIGRAM/SQ. METER
     Route: 058
     Dates: start: 20200521
  23. SEPTRIN [Concomitant]
     Active Substance: SULFAMETHOXAZOLE\TRIMETHOPRIM
     Indication: PRODUCT USED FOR UNKNOWN INDICATION
     Dosage: 160 MILLIGRAM, QOD
     Route: 050
  24. BORTEZOMIB. [Suspect]
     Active Substance: BORTEZOMIB
     Indication: PLASMA CELL MYELOMA
     Dosage: 1.5 MILLIGRAM
     Route: 058
     Dates: start: 20180427
  25. BORTEZOMIB. [Suspect]
     Active Substance: BORTEZOMIB
     Dosage: 0.8 MILLIGRAM/SQ. METER
     Route: 058
     Dates: start: 20200423
  26. DEXAMETHASONE. [Concomitant]
     Active Substance: DEXAMETHASONE
     Dosage: 20 MILLIGRAM
     Route: 065
  27. MIRTAZAPINE. [Concomitant]
     Active Substance: MIRTAZAPINE
     Indication: PRODUCT USED FOR UNKNOWN INDICATION
     Dosage: 15 MILLIGRAM
     Route: 050
  28. BORTEZOMIB. [Suspect]
     Active Substance: BORTEZOMIB
     Dosage: 0.8 MILLIGRAM/SQ. METER
     Route: 058
     Dates: start: 20200430
  29. VALACICLOVIR [Concomitant]
     Active Substance: VALACYCLOVIR HYDROCHLORIDE
     Indication: PRODUCT USED FOR UNKNOWN INDICATION
     Dosage: 500 MILLIGRAM, BID
     Route: 050

REACTIONS (7)
  - Deafness [Recovering/Resolving]
  - Renal impairment [Recovered/Resolved]
  - Dizziness [Recovering/Resolving]
  - Weight decreased [Recovered/Resolved]
  - Productive cough [Recovering/Resolving]
  - Hypotension [Not Recovered/Not Resolved]
  - Weight increased [Unknown]

NARRATIVE: CASE EVENT DATE: 20200106
